FAERS Safety Report 7832462-1 (Version None)
Quarter: 2011Q4

REPORT INFORMATION
  Report Type: 
  Country: None (occurrence: None)
  Receive Date: 20111023
  Receipt Date: 20111011
  Transmission Date: 20120403
  Serious: Yes (Hospitalization, Other)
  Sender: FDA-Public Use
  Company Number: NZ-ELI_LILLY_AND_COMPANY-NZ201107006324

PATIENT
  Age: 45 Year
  Sex: Female

DRUGS (2)
  1. HUMALOG [Suspect]
     Dosage: 45 U, UNK
  2. HUMALOG MIX 75/25 [Suspect]
     Dosage: 30 U, UNK
     Route: 058

REACTIONS (5)
  - DRUG DISPENSING ERROR [None]
  - HYPOGLYCAEMIA [None]
  - WRONG DRUG ADMINISTERED [None]
  - ADENOID CYSTIC CARCINOMA [None]
  - DELAYED ENGRAFTMENT [None]
